FAERS Safety Report 11172351 (Version 1)
Quarter: 2015Q2

REPORT INFORMATION
  Report Type: Spontaneous
  Country: US (occurrence: US)
  Receive Date: 20150608
  Receipt Date: 20150608
  Transmission Date: 20150821
  Serious: No
  Sender: FDA-Public Use
  Company Number: US-PFIZER INC-2015186600

PATIENT
  Sex: Female

DRUGS (20)
  1. DIPHENOXYLATE HCL AND ATROPINE SULFATE [Suspect]
     Active Substance: ATROPINE SULFATE\DIPHENOXYLATE HYDROCHLORIDE
     Dosage: UNK
  2. HYDROCODONE/ACETAMINOPHEN [Suspect]
     Active Substance: ACETAMINOPHEN\HYDROCODONE
     Dosage: UNK
  3. SULFAMETHOXAZOLE AND TRIMETHOPRIM [Suspect]
     Active Substance: SULFAMETHOXAZOLE\TRIMETHOPRIM
     Dosage: UNK
  4. BACTRIM [Suspect]
     Active Substance: SULFAMETHOXAZOLE\TRIMETHOPRIM
     Dosage: UNK
  5. IBUPROFEN. [Suspect]
     Active Substance: IBUPROFEN
     Dosage: UNK
  6. RUFEN [Suspect]
     Active Substance: IBUPROFEN
     Dosage: UNK
  7. TALWIN [Suspect]
     Active Substance: PENTAZOCINE LACTATE
     Dosage: UNK
  8. AMOXICILLIN. [Suspect]
     Active Substance: AMOXICILLIN
  9. ANEXSIA [Suspect]
     Active Substance: ACETAMINOPHEN\HYDROCODONE BITARTRATE
     Dosage: UNK
  10. MOTRIN [Suspect]
     Active Substance: IBUPROFEN
     Dosage: UNK
  11. NIASPAN [Suspect]
     Active Substance: NIACIN
     Dosage: UNK
  12. LOMOTIL [Suspect]
     Active Substance: ATROPINE SULFATE\DIPHENOXYLATE HYDROCHLORIDE
     Dosage: UNK
  13. VICODIN [Suspect]
     Active Substance: ACETAMINOPHEN\HYDROCODONE BITARTRATE
     Dosage: UNK
  14. KEFLEX [Suspect]
     Active Substance: CEPHALEXIN
     Dosage: UNK
  15. PERCODAN [Suspect]
     Active Substance: ASPIRIN\OXYCODONE HYDROCHLORIDE
     Dosage: UNK
  16. SOMA [Suspect]
     Active Substance: CARISOPRODOL
     Dosage: UNK
  17. DOXEPIN HCL [Suspect]
     Active Substance: DOXEPIN HYDROCHLORIDE
     Dosage: UNK
  18. NIACIN. [Suspect]
     Active Substance: NIACIN
     Dosage: UNK
  19. CLEOCIN [Suspect]
     Active Substance: CLINDAMYCIN PHOSPHATE
     Dosage: UNK
  20. STADOL [Suspect]
     Active Substance: BUTORPHANOL TARTRATE
     Dosage: UNK

REACTIONS (1)
  - Drug hypersensitivity [Unknown]
